FAERS Safety Report 23606578 (Version 1)
Quarter: 2024Q1

REPORT INFORMATION
  Report Type: Spontaneous
  Country: IN (occurrence: IN)
  Receive Date: 20240307
  Receipt Date: 20240307
  Transmission Date: 20240410
  Serious: Yes (Hospitalization, Other)
  Sender: FDA-Public Use
  Company Number: IN-NOVAST LABORATORIES INC.-2024NOV000202

PATIENT
  Age: 50 Year
  Sex: Female

DRUGS (3)
  1. FLUOROURACIL [Suspect]
     Active Substance: FLUOROURACIL
     Indication: Lip and/or oral cavity cancer
     Dosage: UNK
     Route: 065
  2. DOCETAXEL [Concomitant]
     Active Substance: DOCETAXEL\DOCETAXEL ANHYDROUS
     Indication: Lip and/or oral cavity cancer
     Dosage: UNK
     Route: 065
  3. CISPLATIN [Concomitant]
     Active Substance: CISPLATIN
     Indication: Lip and/or oral cavity cancer
     Dosage: UNK
     Route: 065

REACTIONS (2)
  - Toxic leukoencephalopathy [Recovered/Resolved]
  - Product use in unapproved indication [Recovered/Resolved]
